FAERS Safety Report 6184868-7 (Version None)
Quarter: 2009Q2

REPORT INFORMATION
  Report Type: 
  Country: None (occurrence: None)
  Receive Date: 20090508
  Receipt Date: 20090428
  Transmission Date: 20091009
  Serious: Yes (Hospitalization, Other)
  Sender: FDA-Public Use
  Company Number: FR-MERCK-0905FRA00006

PATIENT
  Age: 61 Year
  Sex: Male

DRUGS (4)
  1. JANUVIA [Suspect]
     Indication: TYPE 2 DIABETES MELLITUS
     Route: 048
     Dates: start: 20090401, end: 20090401
  2. METFORMIN [Concomitant]
     Indication: TYPE 2 DIABETES MELLITUS
     Route: 048
  3. GLICLAZIDE [Concomitant]
     Indication: TYPE 2 DIABETES MELLITUS
     Route: 048
  4. BISOPROLOL FUMARATE [Concomitant]
     Route: 048

REACTIONS (3)
  - ATRIOVENTRICULAR BLOCK COMPLETE [None]
  - OEDEMA PERIPHERAL [None]
  - WEIGHT INCREASED [None]
